FAERS Safety Report 16012844 (Version 1)
Quarter: 2019Q1

REPORT INFORMATION
  Report Type: Spontaneous
  Country: US (occurrence: US)
  Receive Date: 20190227
  Receipt Date: 20190227
  Transmission Date: 20190418
  Serious: No
  Sender: FDA-Public Use
  Company Number: US-BAYER-2019-041165

PATIENT
  Age: 71 Year
  Sex: Male
  Weight: 151 kg

DRUGS (2)
  1. VITAMINS NOS [Concomitant]
     Active Substance: VITAMINS
  2. MIRALAX [Suspect]
     Active Substance: POLYETHYLENE GLYCOL 3350
     Indication: GASTROINTESTINAL DISORDER
     Dosage: 17G WITH BEVERAGE AS NEEDED
     Route: 048
     Dates: start: 20190224, end: 20190225

REACTIONS (4)
  - Product taste abnormal [Recovered/Resolved]
  - Product solubility abnormal [Unknown]
  - Drug ineffective [Unknown]
  - Poor quality product administered [Unknown]

NARRATIVE: CASE EVENT DATE: 20190224
